FAERS Safety Report 6540291-4 (Version None)
Quarter: 2010Q1

REPORT INFORMATION
  Report Type: 
  Country: None (occurrence: None)
  Receive Date: 20100115
  Receipt Date: 20090218
  Transmission Date: 20100710
  Serious: No
  Sender: FDA-Public Use
  Company Number: US-ABBOTT-09P-163-0558493-00

PATIENT
  Sex: Female
  Weight: 53.118 kg

DRUGS (2)
  1. ADVICOR [Suspect]
     Indication: LOW DENSITY LIPOPROTEIN INCREASED
     Dosage: 1000 MG/20 MG
     Route: 048
     Dates: start: 20030428, end: 20090124
  2. ADVICOR [Suspect]
     Indication: HIGH DENSITY LIPOPROTEIN DECREASED

REACTIONS (4)
  - ARTHRALGIA [None]
  - PRURITUS [None]
  - SWELLING [None]
  - URTICARIA [None]
